FAERS Safety Report 7773931-2 (Version None)
Quarter: 2011Q3

REPORT INFORMATION
  Report Type: 
  Country: None (occurrence: None)
  Receive Date: 20110923
  Receipt Date: 20110627
  Transmission Date: 20111222
  Serious: Yes (Hospitalization)
  Sender: FDA-Public Use
  Company Number: JP-SP-2011-03134

PATIENT
  Sex: Male

DRUGS (2)
  1. IMMUCYST [Suspect]
     Indication: BLADDER TRANSITIONAL CELL CARCINOMA
     Route: 043
     Dates: start: 20100526, end: 20101201
  2. LEVOFLOXACIN [Concomitant]

REACTIONS (4)
  - DISSEMINATED TUBERCULOSIS [None]
  - HAEMATURIA [None]
  - PYREXIA [None]
  - PYURIA [None]
